FAERS Safety Report 18017097 (Version 2)
Quarter: 2020Q3

REPORT INFORMATION
  Report Type: Spontaneous
  Country: GB (occurrence: GB)
  Receive Date: 20200713
  Receipt Date: 20200902
  Transmission Date: 20201103
  Serious: No
  Sender: FDA-Public Use
  Company Number: GB-009507513-2007GBR004275

PATIENT
  Age: 29 Year
  Sex: Female

DRUGS (2)
  1. NEXPLANON [Suspect]
     Active Substance: ETONOGESTREL
     Indication: CONTRACEPTION
     Dosage: 1 DOSAGE FORM
     Dates: end: 20200218
  2. NEXPLANON [Suspect]
     Active Substance: ETONOGESTREL
     Dosage: 1 DOSAGE FORM, IN ARM
     Route: 059
     Dates: start: 20200218

REACTIONS (9)
  - Device expulsion [Not Recovered/Not Resolved]
  - Vaginal haemorrhage [Unknown]
  - Implant site scar [Unknown]
  - Complication associated with device [Recovered/Resolved]
  - Device issue [Recovered/Resolved]
  - Vaginal haemorrhage [Unknown]
  - Skin abrasion [Unknown]
  - Pain in extremity [Unknown]
  - Amenorrhoea [Recovered/Resolved]

NARRATIVE: CASE EVENT DATE: 2020
